FAERS Safety Report 7396967-2 (Version None)
Quarter: 2011Q2

REPORT INFORMATION
  Report Type: 
  Country: None (occurrence: None)
  Receive Date: 20110406
  Receipt Date: 20110330
  Transmission Date: 20111010
  Serious: Yes (Other)
  Sender: FDA-Public Use
  Company Number: US-TEVA-271559USA

PATIENT
  Sex: Female

DRUGS (2)
  1. CLARAVIS [Suspect]
     Route: 048
     Dates: start: 20101211, end: 20110201
  2. ORAL CONTRACEPTIVE NOS [Concomitant]

REACTIONS (4)
  - ABORTION INDUCED [None]
  - VICTIM OF SEXUAL ABUSE [None]
  - UNINTENDED PREGNANCY [None]
  - DRUG EXPOSURE DURING PREGNANCY [None]
